FAERS Safety Report 5704873-1 (Version None)
Quarter: 2008Q2

REPORT INFORMATION
  Report Type: 
  Country: None (occurrence: None)
  Receive Date: 20080414
  Receipt Date: 20080401
  Transmission Date: 20081010
  Serious: Yes (Other)
  Sender: FDA-Public Use
  Company Number: US-BAYER-US-2006-006373

PATIENT
  Age: 64 Year
  Sex: Female
  Weight: 68 kg

DRUGS (21)
  1. CLIMARA [Suspect]
     Indication: MENOPAUSAL SYMPTOMS
     Route: 062
     Dates: start: 19950101, end: 19980101
  2. ESTRADERM [Suspect]
     Indication: MENOPAUSAL SYMPTOMS
     Dates: start: 19940101, end: 19950101
  3. PROVERA [Suspect]
     Indication: MENOPAUSAL SYMPTOMS
     Dates: start: 19940101, end: 19980101
  4. PREMPRO [Suspect]
     Indication: MENOPAUSAL SYMPTOMS
     Dates: start: 19980101, end: 20020101
  5. SYNTHROID [Concomitant]
     Indication: HYPOTHYROIDISM
     Dates: start: 19820101
  6. MORVAN [Concomitant]
     Indication: HYPERTENSION
     Dates: start: 19930101, end: 20020101
  7. CLONIDINE HCL [Concomitant]
     Indication: HYPERTENSION
     Dates: start: 20020101, end: 20050101
  8. COZAAR [Concomitant]
     Indication: HYPERTENSION
     Dates: start: 20050101
  9. ASPIRIN [Concomitant]
     Indication: ANTICOAGULANT THERAPY
     Dates: start: 19930101
  10. HYDROCODONE BITARTRATE + ACETAMINOPHEN [Concomitant]
     Dates: start: 20020101
  11. WELLBUTRIN SR [Concomitant]
     Dates: start: 20020101
  12. ATROVENT [Concomitant]
     Dates: start: 20020101
  13. UNIVASC [Concomitant]
  14. ACULAR [Concomitant]
     Dates: start: 20020101
  15. PRED FORTE [Concomitant]
     Dates: start: 20020101
  16. FLONASE [Concomitant]
     Dates: start: 20020101
  17. LEVOXYL [Concomitant]
     Dates: start: 20020101
  18. PREDNISONE [Concomitant]
     Dates: start: 20020101
  19. OCUFLOX [Concomitant]
     Dates: start: 20020101
  20. ALLEGRA [Concomitant]
     Dates: start: 20020101
  21. LEVAQUIN [Concomitant]
     Dates: start: 20020101

REACTIONS (4)
  - BREAST CANCER FEMALE [None]
  - BREAST CYST [None]
  - MUSCULOSKELETAL DISCOMFORT [None]
  - POSTOPERATIVE WOUND COMPLICATION [None]
